FAERS Safety Report 4899143-8 (Version None)
Quarter: 2006Q1

REPORT INFORMATION
  Report Type: 
  Country: None (occurrence: None)
  Receive Date: 20060202
  Receipt Date: 20051128
  Transmission Date: 20060701
  Serious: Yes (Hospitalization)
  Sender: FDA-Public Use
  Company Number: US-SANOFI-SYNTHELABO-F01200502556

PATIENT
  Sex: Male
  Weight: 81.82 kg

DRUGS (23)
  1. CLOPIDOGREL [Suspect]
     Indication: ACUTE CORONARY SYNDROME
     Dosage: UNK
     Dates: start: 20050715
  2. ACTOS [Concomitant]
  3. ASPIRIN [Concomitant]
     Dosage: UNK
     Route: 065
     Dates: start: 20050702
  4. ATENOLOL [Concomitant]
  5. ZETIA [Concomitant]
     Dosage: UNK
     Route: 065
     Dates: start: 20050703
  6. FLOVENT [Concomitant]
  7. LASIX [Concomitant]
     Dosage: UNK
     Route: 065
     Dates: start: 20050702
  8. GLIPIZIDE [Concomitant]
  9. METFORMIN [Concomitant]
  10. LISINOPRIL [Concomitant]
  11. PROTONIX [Concomitant]
  12. K-DUR 10 [Concomitant]
     Dosage: UNK
     Route: 065
     Dates: start: 20050703
  13. ZOCOR [Concomitant]
  14. RESTORIL [Concomitant]
  15. IMDUR [Concomitant]
     Dosage: UNK
     Route: 065
     Dates: start: 20050707
  16. MOTRIN [Concomitant]
  17. SENOKOT [Concomitant]
  18. VYTORIN [Concomitant]
  19. INSULIN [Concomitant]
  20. TYLENOL [Concomitant]
  21. ADVAIR DISKUS 100/50 [Concomitant]
  22. METAGLIZ [Concomitant]
  23. ACEON [Concomitant]

REACTIONS (19)
  - BLOOD GLUCOSE INCREASED [None]
  - CARDIAC FAILURE CONGESTIVE [None]
  - CEREBROVASCULAR ACCIDENT [None]
  - ENCEPHALOPATHY [None]
  - GASTRITIS [None]
  - HELICOBACTER INFECTION [None]
  - HYPONATRAEMIA [None]
  - INTESTINAL ISCHAEMIA [None]
  - MALIGNANT HYPERTENSION [None]
  - MENTAL STATUS CHANGES [None]
  - PLEURAL EFFUSION [None]
  - PULSE ABSENT [None]
  - RECTAL HAEMORRHAGE [None]
  - RENAL ARTERY STENOSIS [None]
  - RESPIRATORY FAILURE [None]
  - STREPTOCOCCAL INFECTION [None]
  - UROSEPSIS [None]
  - VASCULAR PSEUDOANEURYSM [None]
  - WEIGHT DECREASED [None]
